FAERS Safety Report 10550855 (Version 2)
Quarter: 2014Q4

REPORT INFORMATION
  Report Type: Spontaneous
  Country: AU (occurrence: None)
  Receive Date: 20141027
  Receipt Date: 20141105
  Transmission Date: 20150529
  Serious: Yes (Hospitalization)
  Sender: FDA-Public Use
  Company Number: AU-017456

PATIENT
  Age: 80 Year
  Sex: Male

DRUGS (1)
  1. FIRMAGON [Suspect]
     Active Substance: DEGARELIX ACETATE
     Indication: PROSTATE CANCER
     Dosage: 80MG 1X/MONTH SUBCUTANEOUS
     Route: 058
     Dates: start: 20140307

REACTIONS (5)
  - Malaise [None]
  - Injection site erythema [None]
  - Injection site mass [None]
  - Anaphylactoid reaction [None]
  - Pyrexia [None]

NARRATIVE: CASE EVENT DATE: 201402
